FAERS Safety Report 23630187 (Version 2)
Quarter: 2024Q1

REPORT INFORMATION
  Report Type: Spontaneous
  Country: AU (occurrence: AU)
  Receive Date: 20240314
  Receipt Date: 20240318
  Transmission Date: 20240410
  Serious: Yes (Death, Hospitalization, Other)
  Sender: FDA-Public Use
  Company Number: AU-TAKEDA-2024TUS022010

PATIENT
  Age: 73 Year
  Sex: Female

DRUGS (16)
  1. PANTOPRAZOLE SODIUM [Suspect]
     Active Substance: PANTOPRAZOLE SODIUM
     Dosage: 40 MILLIGRAM, QD
     Route: 048
  2. PANTOPRAZOLE [Suspect]
     Active Substance: PANTOPRAZOLE
     Dosage: 40 MILLIGRAM, Q12H
     Route: 042
  3. HEPARIN SODIUM [Suspect]
     Active Substance: HEPARIN SODIUM
     Dosage: UNK UNK, Q12H
     Route: 058
  4. FUROSEMIDE [Suspect]
     Active Substance: FUROSEMIDE
     Dosage: 40 MILLIGRAM, QOD
     Route: 048
  5. FUROSEMIDE [Suspect]
     Active Substance: FUROSEMIDE
     Dosage: 20 MILLIGRAM, QOD
     Route: 048
  6. ACETAMINOPHEN [Suspect]
     Active Substance: ACETAMINOPHEN
     Dosage: 1000 MILLIGRAM, Q6HR
     Route: 048
  7. SODIUM BICARBONATE [Suspect]
     Active Substance: SODIUM BICARBONATE
     Dosage: 840 MILLIGRAM, Q8HR
     Route: 048
  8. METHYLPREDNISOLONE ACEPONATE [Suspect]
     Active Substance: METHYLPREDNISOLONE ACEPONATE
     Dosage: UNK
     Route: 065
  9. MAGNESIUM ASPARTATE DIHYDRATE [Suspect]
     Active Substance: MAGNESIUM ASPARTATE DIHYDRATE
     Dosage: 1 DOSAGE FORM, QD
     Route: 048
  10. FLOLAN [Suspect]
     Active Substance: EPOPROSTENOL SODIUM
     Indication: Pulmonary arterial hypertension
     Dosage: UNK
     Dates: start: 20230920
  11. NEBIVOLOL [Suspect]
     Active Substance: NEBIVOLOL
     Dosage: 1.25 MILLIGRAM, QD
     Route: 048
  12. OPSUMIT [Suspect]
     Active Substance: MACITENTAN
     Dosage: 10 MILLIGRAM, QD
     Route: 048
     Dates: start: 202112
  13. DOCUSATE SODIUM [Suspect]
     Active Substance: DOCUSATE SODIUM
     Dosage: UNK
  14. EPOPROSTENOL SODIUM [Suspect]
     Active Substance: EPOPROSTENOL SODIUM
     Indication: Cardiac failure
     Dosage: UNK
     Route: 041
     Dates: start: 202309
  15. ROSUVASTATIN CALCIUM [Suspect]
     Active Substance: ROSUVASTATIN CALCIUM
     Dosage: 5 MILLIGRAM, QD
     Route: 048
  16. FERROUS SULFATE\SODIUM ASCORBATE [Suspect]
     Active Substance: FERROUS SULFATE\SODIUM ASCORBATE
     Dosage: UNK UNK, QD
     Route: 048

REACTIONS (6)
  - Pneumonia [Fatal]
  - Hypotension [Unknown]
  - Diarrhoea [Unknown]
  - Epistaxis [Unknown]
  - Heart rate increased [Unknown]
  - Loss of personal independence in daily activities [Not Recovered/Not Resolved]
